FAERS Safety Report 8591136-2 (Version None)
Quarter: 2012Q3

REPORT INFORMATION
  Report Type: 
  Country: None (occurrence: None)
  Receive Date: 20120813
  Receipt Date: 20120803
  Transmission Date: 20120928
  Serious: Yes (Other)
  Sender: FDA-Public Use
  Company Number: DE-ROCHE-1093038

PATIENT
  Sex: Female

DRUGS (4)
  1. RANIBIZUMAB [Suspect]
     Route: 050
     Dates: start: 20101208
  2. AZOPT [Concomitant]
     Dates: start: 20120213
  3. RANIBIZUMAB [Suspect]
     Indication: AGE-RELATED MACULAR DEGENERATION
     Route: 050
     Dates: start: 20101103
  4. RANIBIZUMAB [Suspect]
     Route: 050
     Dates: start: 20110105

REACTIONS (4)
  - NORMAL TENSION GLAUCOMA [None]
  - OPTIC ATROPHY [None]
  - MALAISE [None]
  - VISUAL ACUITY REDUCED [None]
